FAERS Safety Report 7532613-2 (Version None)
Quarter: 2011Q2

REPORT INFORMATION
  Report Type: 
  Country: None (occurrence: None)
  Receive Date: 20110608
  Receipt Date: 20110605
  Transmission Date: 20111010
  Serious: Yes (Death, Hospitalization)
  Sender: FDA-Public Use
  Company Number: PHHY2011CA34778

PATIENT
  Sex: Female
  Weight: 50.9 kg

DRUGS (8)
  1. CRESTOR [Concomitant]
     Dosage: 1 MG, UNK
  2. MAVIK [Concomitant]
     Dosage: 2 MG, UNK
  3. CELEXA [Concomitant]
     Dosage: 20 UKN, UNK
  4. RIVASTIGMINE [Suspect]
     Indication: DEMENTIA ALZHEIMER'S TYPE
     Dosage: PATCH 10(CM^2)
     Route: 062
     Dates: start: 20091017
  5. NORVASC [Concomitant]
     Dosage: 5 UKN, UNK
  6. FERROUS SULFATE TAB [Concomitant]
     Dosage: 300 UKN, UNK
  7. ADVAIR DISKUS 100/50 [Concomitant]
     Dosage: 250 UKN, BID
  8. NEXIUM [Concomitant]
     Dosage: 40 UKN, UNK

REACTIONS (1)
  - SEPSIS [None]
